FAERS Safety Report 8242913-9 (Version None)
Quarter: 2012Q1

REPORT INFORMATION
  Report Type: 
  Country: None (occurrence: None)
  Receive Date: 20120329
  Receipt Date: 20120329
  Transmission Date: 20120608
  Serious: Yes (Life-Threatening, Hospitalization, Disabling, Other)
  Sender: FDA-Public Use
  Company Number: None

PATIENT
  Sex: Female
  Weight: 19.5 kg

DRUGS (9)
  1. ACETAMINOPHEN-CODEINE LIQUID [Concomitant]
     Route: 048
  2. ESOMEPRAZOLE [Concomitant]
     Route: 042
  3. CROFAB [Suspect]
     Indication: SNAKE BITE
     Dosage: 2 VIALS
     Route: 041
     Dates: start: 20120327, end: 20120327
  4. LR 50 ML/HR [Concomitant]
     Route: 042
  5. MORPHINE [Concomitant]
     Route: 042
  6. FENTANYL [Concomitant]
     Route: 042
  7. CLINDAMYCIN [Concomitant]
     Route: 042
  8. D5 1/2 NS WITH 20 MEQ K 5 ML/HR [Concomitant]
     Route: 042
  9. BACITRACIN [Concomitant]
     Route: 051

REACTIONS (3)
  - BLOOD PRESSURE DIASTOLIC DECREASED [None]
  - HYPOTENSION [None]
  - BLOOD PRESSURE SYSTOLIC INCREASED [None]
